FAERS Safety Report 11360532 (Version 2)
Quarter: 2015Q3

REPORT INFORMATION
  Report Type: Report from Study
  Country: US (occurrence: US)
  Receive Date: 20150810
  Receipt Date: 20150901
  Transmission Date: 20151125
  Serious: No
  Sender: FDA-Public Use
  Company Number: PHEH2015US006120

PATIENT
  Age: 29 Year
  Sex: Female

DRUGS (4)
  1. EXTAVIA [Suspect]
     Active Substance: INTERFERON BETA-1B
     Indication: MULTIPLE SCLEROSIS
     Dosage: 0.062 MG, (0.25 ML) EVERY OTHER DAY WEEK 1 TO 2
     Route: 058
     Dates: start: 20150323
  2. EXTAVIA [Suspect]
     Active Substance: INTERFERON BETA-1B
     Dosage: 0.25 MG, (1 ML) EVERY OTHER DAY FOR WEEK 7
     Route: 058
  3. EXTAVIA [Suspect]
     Active Substance: INTERFERON BETA-1B
     Dosage: 0.125 MG, (0.5 ML) EVERY OTHER DAY FOR WEEK 3 TO 4
     Route: 058
  4. EXTAVIA [Suspect]
     Active Substance: INTERFERON BETA-1B
     Dosage: 0.187 MG, (0.75 ML) EVERY OTHER DAY FOR WEEK 5 TO 6
     Route: 058

REACTIONS (5)
  - Injection site bruising [Unknown]
  - Chest discomfort [Recovered/Resolved]
  - Injection site haemorrhage [Unknown]
  - Muscle tightness [Recovered/Resolved]
  - Incorrect route of drug administration [Unknown]

NARRATIVE: CASE EVENT DATE: 20150323
